FAERS Safety Report 9798873 (Version 1)
Quarter: 2014Q1

REPORT INFORMATION
  Report Type: Spontaneous
  Country: US (occurrence: US)
  Receive Date: 20140106
  Receipt Date: 20140106
  Transmission Date: 20141002
  Serious: No
  Sender: FDA-Public Use
  Company Number: US-GILEAD-2010-0034439

PATIENT
  Age: 75 Year
  Sex: Male

DRUGS (8)
  1. LETAIRIS [Suspect]
     Indication: PULMONARY HYPERTENSION
     Route: 048
     Dates: start: 201001, end: 201011
  2. LETAIRIS [Suspect]
     Route: 048
  3. ADCIRCA [Concomitant]
  4. WARFARIN [Concomitant]
  5. CLONIDINE [Concomitant]
  6. METOPROLOL [Concomitant]
  7. SPIRONOLACTONE [Concomitant]
  8. SIMVASTATIN [Concomitant]

REACTIONS (3)
  - Unevaluable event [Unknown]
  - Dyspnoea [Unknown]
  - Oedema peripheral [Unknown]
